FAERS Safety Report 7444818-X (Version None)
Quarter: 2011Q2

REPORT INFORMATION
  Report Type: 
  Country: None (occurrence: None)
  Receive Date: 20110426
  Receipt Date: 20110426
  Transmission Date: 20111010
  Serious: No
  Sender: FDA-Public Use
  Company Number: None

PATIENT
  Age: 56 Year
  Sex: Male
  Weight: 158.759 kg

DRUGS (1)
  1. ANDRODERM [Suspect]
     Indication: BLOOD TESTOSTERONE DECREASED
     Dosage: 2.5MG PATCH DAILY TOP
     Route: 061
     Dates: start: 20110310, end: 20110425

REACTIONS (1)
  - APPLICATION SITE ERYTHEMA [None]
